FAERS Safety Report 8962870 (Version 1)
Quarter: 2012Q4

REPORT INFORMATION
  Report Type: Spontaneous
  Country: US (occurrence: None)
  Receive Date: 20121129
  Receipt Date: 20121129
  Transmission Date: 20130627
  Serious: Yes (Hospitalization, Other)
  Sender: FDA-Public Use
  Company Number: 2012033983

PATIENT
  Age: 39 Year
  Sex: Female

DRUGS (4)
  1. BERINERT [Suspect]
     Indication: HEREDITARY ANGIOEDEMA
     Dates: start: 20121107
  2. BERINERT [Suspect]
     Indication: HEREDITARY ANGIOEDEMA
     Dates: start: 20121108
  3. BERINERT [Suspect]
     Indication: HEREDITARY ANGIOEDEMA
  4. BERINERT [Suspect]
     Indication: HEREDITARY ANGIOEDEMA
     Dosage: Multiple infusions while in hospital

REACTIONS (8)
  - Condition aggravated [None]
  - Rebound effect [None]
  - Abdominal distension [None]
  - Hereditary angioedema [None]
  - Facial pain [None]
  - Oxygen saturation abnormal [None]
  - No therapeutic response [None]
  - Oxygen saturation decreased [None]
